FAERS Safety Report 5843292-4 (Version None)
Quarter: 2008Q3

REPORT INFORMATION
  Report Type: 
  Country: None (occurrence: None)
  Receive Date: 20080813
  Receipt Date: 20080620
  Transmission Date: 20090109
  Serious: No
  Sender: FDA-Public Use
  Company Number: US-BAYER-200812822BCC

PATIENT
  Age: 10 Month
  Sex: Male
  Weight: 9.979 kg

DRUGS (1)
  1. ALEVE [Suspect]
     Indication: DRUG USE FOR UNKNOWN INDICATION
     Route: 048
     Dates: start: 20080620, end: 20080620

REACTIONS (1)
  - NO ADVERSE EVENT [None]
